FAERS Safety Report 19423602 (Version 3)
Quarter: 2022Q3

REPORT INFORMATION
  Report Type: Report from Study
  Country: US (occurrence: US)
  Receive Date: 20210616
  Receipt Date: 20220712
  Transmission Date: 20221026
  Serious: Yes (Other)
  Sender: FDA-Public Use
  Company Number: US-TAKEDA-US201908499

PATIENT
  Age: 46 Year
  Sex: Female

DRUGS (1)
  1. HUMAN IMMUNOGLOBULIN G [Suspect]
     Active Substance: HUMAN IMMUNOGLOBULIN G
     Indication: Primary immunodeficiency syndrome
     Dosage: 70 MILLIGRAM, MONTHLY
     Route: 042
     Dates: end: 20200801

REACTIONS (6)
  - Herpes zoster [Unknown]
  - Illness [Unknown]
  - COVID-19 [Unknown]
  - Sinus disorder [Unknown]
  - Respiratory syncytial virus infection [Unknown]
  - Therapy interrupted [Unknown]

NARRATIVE: CASE EVENT DATE: 20200901
